FAERS Safety Report 15207346 (Version 1)
Quarter: 2018Q3

REPORT INFORMATION
  Report Type: Spontaneous
  Country: GB (occurrence: GB)
  Receive Date: 20180727
  Receipt Date: 20180727
  Transmission Date: 20181010
  Serious: Yes (Other)
  Sender: FDA-Public Use
  Company Number: GB-PFIZER INC-2018299121

PATIENT
  Age: 50 Year
  Sex: Female
  Weight: 69 kg

DRUGS (16)
  1. FENBID [Concomitant]
     Active Substance: IBUPROFEN
     Dosage: 1 DF, UNK
     Dates: start: 20170922
  2. DOMPERIDONE [Concomitant]
     Active Substance: DOMPERIDONE
     Dosage: 1 DF, 3 TIMES DAILY.
     Dates: start: 20171024
  3. CETIRIZINE [Concomitant]
     Active Substance: CETIRIZINE HYDROCHLORIDE
     Dosage: 1 DF, 1X/DAY
     Dates: start: 20171024
  4. IBUPROFEN. [Suspect]
     Active Substance: IBUPROFEN
     Dosage: UNK
     Dates: start: 20180626
  5. OMEPRAZOLE. [Concomitant]
     Active Substance: OMEPRAZOLE
     Dosage: 1 DF, 1X/DAY
     Dates: start: 20171024
  6. SUMATRIPTAN. [Concomitant]
     Active Substance: SUMATRIPTAN
     Dosage: 1 DF, AS EARLY AS POSSIBLE
     Dates: start: 20180207
  7. TEGRETOL [Concomitant]
     Active Substance: CARBAMAZEPINE
     Dosage: 2 DF  IN THE MORNING AND ONE AT TEATIME
     Dates: start: 20171024
  8. TOPIRAMATE. [Concomitant]
     Active Substance: TOPIRAMATE
     Dosage: 2 DF  IN THE MORNING AND ONE AT TEATIME
     Dates: start: 20171024
  9. PROPRANOLOL [Concomitant]
     Active Substance: PROPRANOLOL HYDROCHLORIDE
     Dosage: 1 DF, 1X/DAY, AT MIDDAY
     Dates: start: 20171024
  10. SOLIFENACIN [Concomitant]
     Active Substance: SOLIFENACIN
     Dosage: 1 DF, 1X/DAY
     Dates: start: 20171024
  11. QUININE [Concomitant]
     Active Substance: QUININE
     Dosage: 1 DF, 1X/DAY, EACH NIGHT.
     Dates: start: 20171024
  12. BECLOMETASONE [Concomitant]
     Active Substance: BECLOMETHASONE DIPROPIONATE
     Dosage: 2 DF, EACH NOSTRIL.
     Route: 045
     Dates: start: 20171024
  13. CALCIUM CARBONATE. [Concomitant]
     Active Substance: CALCIUM CARBONATE
     Dosage: 2 DF,IN THE MORNING AND ONE AT TEATIME
     Dates: start: 20171024
  14. ZEROBASE /00103901/ [Concomitant]
     Dosage: 1 DF, TWO OR THREE TIMES A DAY
     Dates: start: 20180626
  15. PARACETAMOL [Concomitant]
     Active Substance: ACETAMINOPHEN
     Dosage: 8 DF, 1X/DAY
     Dates: start: 20180122
  16. NAPROXEN. [Concomitant]
     Active Substance: NAPROXEN
     Dosage: 2 DF, 1X/DAY
     Dates: start: 20180426, end: 20180510

REACTIONS (2)
  - Rash [Recovering/Resolving]
  - Skin burning sensation [Recovering/Resolving]

NARRATIVE: CASE EVENT DATE: 20180626
